FAERS Safety Report 8905447 (Version 7)
Quarter: 2013Q1

REPORT INFORMATION
  Report Type: Spontaneous
  Country: US (occurrence: US)
  Receive Date: 20121112
  Receipt Date: 20130117
  Transmission Date: 20140127
  Serious: Yes (Other)
  Sender: FDA-Public Use
  Company Number: US-JNJFOC-20121102842

PATIENT
  Age: 78 None
  Sex: Male

DRUGS (7)
  1. XARELTO [Suspect]
     Indication: CEREBROVASCULAR ACCIDENT PROPHYLAXIS
     Route: 048
  2. XARELTO [Suspect]
     Indication: ATRIAL FIBRILLATION
     Route: 048
  3. XARELTO [Suspect]
     Indication: THROMBOSIS PROPHYLAXIS
     Route: 048
  4. XARELTO [Suspect]
     Indication: KNEE OPERATION
     Route: 048
  5. DOXASIN [Concomitant]
     Route: 048
  6. FLOMAX [Concomitant]
  7. SYNTHROID [Concomitant]

REACTIONS (3)
  - Cardiac tamponade [Recovered/Resolved]
  - Pneumonia [Unknown]
  - Bacterial test positive [Unknown]
